FAERS Safety Report 4549299-1 (Version None)
Quarter: 2005Q1

REPORT INFORMATION
  Report Type: 
  Country: None (occurrence: None)
  Receive Date: 20050106
  Receipt Date: 20041220
  Transmission Date: 20050727
  Serious: Yes (Other)
  Sender: FDA-Public Use
  Company Number: USA041183112

PATIENT
  Age: 30 Year
  Sex: Male
  Weight: 77 kg

DRUGS (2)
  1. CYMBALTA [Suspect]
     Indication: DEPRESSION
     Dosage: 60 MG DAY
     Dates: start: 20041019, end: 20041021
  2. PROTONIX [Concomitant]

REACTIONS (5)
  - DISORIENTATION [None]
  - FEELING ABNORMAL [None]
  - HYPOAESTHESIA [None]
  - LOSS OF CONSCIOUSNESS [None]
  - PARAESTHESIA [None]
